FAERS Safety Report 18292325 (Version 1)
Quarter: 2020Q3

REPORT INFORMATION
  Report Type: Spontaneous
  Country: US (occurrence: US)
  Receive Date: 20200921
  Receipt Date: 20200921
  Transmission Date: 20201103
  Serious: Yes (Hospitalization)
  Sender: FDA-Public Use
  Company Number: None

PATIENT
  Sex: Female

DRUGS (1)
  1. METHOTREXATE MDV (2ML/VL) [Suspect]
     Active Substance: METHOTREXATE
     Indication: IDIOPATHIC URTICARIA
     Route: 058
     Dates: start: 20191205

REACTIONS (1)
  - Seizure [None]
